FAERS Safety Report 5848186-6 (Version None)
Quarter: 2008Q3

REPORT INFORMATION
  Report Type: 
  Country: None (occurrence: None)
  Receive Date: 20080818
  Receipt Date: 20080808
  Transmission Date: 20090109
  Serious: Yes (Other)
  Sender: FDA-Public Use
  Company Number: A0743114A

PATIENT
  Age: 58 Year
  Sex: Male

DRUGS (3)
  1. AVANDIA [Suspect]
     Route: 048
  2. VITAMIN B COMPLEX CAP [Concomitant]
  3. GLUCOTROL [Concomitant]

REACTIONS (7)
  - ACCELERATED HYPERTENSION [None]
  - ANAEMIA [None]
  - ANGINA UNSTABLE [None]
  - BRADYCARDIA [None]
  - CORONARY ARTERY DISEASE [None]
  - ELECTROCARDIOGRAM ABNORMAL [None]
  - MYOCARDIAL INFARCTION [None]
